FAERS Safety Report 15957532 (Version 1)
Quarter: 2019Q1

REPORT INFORMATION
  Report Type: Spontaneous
  Country: BR (occurrence: BR)
  Receive Date: 20190213
  Receipt Date: 20190213
  Transmission Date: 20190417
  Serious: Yes (Death, Other)
  Sender: FDA-Public Use
  Company Number: BR-ASTRAZENECA-2019SE24441

PATIENT
  Age: 75 Year

DRUGS (1)
  1. TAGRISSO [Suspect]
     Active Substance: OSIMERTINIB
     Indication: PROPHYLAXIS
     Route: 048

REACTIONS (2)
  - Cardiogenic shock [Fatal]
  - Ventricular dysfunction [Unknown]
